FAERS Safety Report 10237621 (Version 1)
Quarter: 2014Q2

REPORT INFORMATION
  Report Type: Spontaneous
  Country: US (occurrence: US)
  Receive Date: 20140616
  Receipt Date: 20140616
  Transmission Date: 20141212
  Serious: No
  Sender: FDA-Public Use
  Company Number: US-009507513-1406USA004584

PATIENT
  Sex: Female

DRUGS (4)
  1. JANUVIA [Suspect]
     Indication: DIABETES MELLITUS
     Dosage: DOSE/FREQUENCY: 100 MG/ONCE DAILY
     Route: 048
     Dates: start: 20140509
  2. NAPROXEN [Concomitant]
  3. METFORMIN [Concomitant]
  4. LEVEMIR [Concomitant]

REACTIONS (2)
  - Dizziness [Not Recovered/Not Resolved]
  - Nausea [Not Recovered/Not Resolved]
